FAERS Safety Report 25285122 (Version 2)
Quarter: 2025Q2

REPORT INFORMATION
  Report Type: Report from Study
  Country: PL (occurrence: PL)
  Receive Date: 20250509
  Receipt Date: 20250511
  Transmission Date: 20250717
  Serious: No
  Sender: ABBVIE
  Company Number: PL-ABBVIE-6255076

PATIENT
  Age: 71 Year
  Sex: Male

DRUGS (1)
  1. FOSCARBIDOPA\FOSLEVODOPA [Suspect]
     Active Substance: FOSCARBIDOPA\FOSLEVODOPA
     Indication: Parkinson^s disease
     Route: 058
     Dates: start: 20250204

REACTIONS (2)
  - Infusion site pustule [Recovering/Resolving]
  - Infusion site inflammation [Recovering/Resolving]

NARRATIVE: CASE EVENT DATE: 20250417
